FAERS Safety Report 11183573 (Version 5)
Quarter: 2016Q2

REPORT INFORMATION
  Report Type: Spontaneous
  Country: CO (occurrence: CO)
  Receive Date: 20150612
  Receipt Date: 20160622
  Transmission Date: 20160815
  Serious: Yes (Hospitalization, Other)
  Sender: FDA-Public Use
  Company Number: CO-AMGEN-COLSP2015056647

PATIENT
  Age: 70 Year
  Sex: Male
  Weight: 62 kg

DRUGS (1)
  1. KYPROLIS [Suspect]
     Active Substance: CARFILZOMIB
     Indication: PLASMA CELL MYELOMA
     Dosage: 32 MG, DAY 1,2,8,9,15 AND 16, CYCLES EVERY 28 DAYS
     Route: 065
     Dates: start: 20140128

REACTIONS (14)
  - Pneumonia [Unknown]
  - Hepatitis [Unknown]
  - Skin lesion [Unknown]
  - Tenderness [Unknown]
  - Activities of daily living impaired [Unknown]
  - Joint range of motion decreased [Unknown]
  - Trigger finger [Unknown]
  - Arthralgia [Unknown]
  - Walking aid user [Unknown]
  - Rash erythematous [Unknown]
  - Paraparesis [Unknown]
  - Plasma cell myeloma [Unknown]
  - Secretion discharge [Unknown]
  - Pain [Unknown]

NARRATIVE: CASE EVENT DATE: 2014
